FAERS Safety Report 5538047-4 (Version None)
Quarter: 2007Q4

REPORT INFORMATION
  Report Type: 
  Country: None (occurrence: None)
  Receive Date: 20071207
  Receipt Date: 20071116
  Transmission Date: 20080405
  Serious: No
  Sender: FDA-Public Use
  Company Number: US-BOEHRINGER INGELHEIM PHARMACEUTICALS, INC.-2007-BP-24877BP

PATIENT
  Sex: Female

DRUGS (8)
  1. CLONIDINE HCL [Suspect]
  2. TOPROL-XL [Concomitant]
     Route: 048
  3. CYMBALTA [Concomitant]
  4. NITROGLYCERIN [Concomitant]
     Indication: CHEST PAIN
     Route: 060
  5. PERCOCET [Concomitant]
     Indication: PAIN
  6. DETROL [Concomitant]
  7. SANCTURA [Concomitant]
  8. GAVEPENTON [Concomitant]

REACTIONS (1)
  - BLOOD PRESSURE INCREASED [None]
